FAERS Safety Report 18785639 (Version 2)
Quarter: 2021Q2

REPORT INFORMATION
  Report Type: Report from Study
  Country: US (occurrence: US)
  Receive Date: 20210125
  Receipt Date: 20210429
  Transmission Date: 20210717
  Serious: Yes (Hospitalization, Other)
  Sender: FDA-Public Use
  Company Number: US-SHIRE-US202025733

PATIENT
  Age: 30 Year
  Sex: Female

DRUGS (24)
  1. TEDUGLUTIDE [Suspect]
     Active Substance: TEDUGLUTIDE
     Dosage: 4.68 MILLIGRAM, 1X/DAY:QD
     Route: 058
     Dates: start: 20200320
  2. TEDUGLUTIDE [Suspect]
     Active Substance: TEDUGLUTIDE
     Indication: SHORT-BOWEL SYNDROME
     Dosage: 4.68 MILLIGRAM, 1X/DAY:QD
     Route: 058
     Dates: start: 202003
  3. TEDUGLUTIDE [Suspect]
     Active Substance: TEDUGLUTIDE
     Dosage: 0.2280 (UNIT UNKNOWN) 1X/DAY:QD
     Route: 058
     Dates: start: 20200320
  4. TEDUGLUTIDE [Suspect]
     Active Substance: TEDUGLUTIDE
     Dosage: 4.68 MILLIGRAM, QD
     Route: 058
     Dates: start: 20200316
  5. TEDUGLUTIDE [Suspect]
     Active Substance: TEDUGLUTIDE
     Indication: SHORT-BOWEL SYNDROME
     Dosage: 4.68 MILLIGRAM, 1X/DAY:QD
     Route: 058
     Dates: start: 202003
  6. TEDUGLUTIDE [Suspect]
     Active Substance: TEDUGLUTIDE
     Dosage: 4.68 MILLIGRAM, 1X/DAY:QD
     Route: 058
     Dates: start: 20200320
  7. TEDUGLUTIDE [Suspect]
     Active Substance: TEDUGLUTIDE
     Dosage: 4.68 MILLIGRAM, QD
     Route: 058
     Dates: start: 20200317
  8. TEDUGLUTIDE [Suspect]
     Active Substance: TEDUGLUTIDE
     Dosage: 4.68 MILLIGRAM, QD
     Route: 058
     Dates: start: 20200316
  9. TEDUGLUTIDE [Suspect]
     Active Substance: TEDUGLUTIDE
     Dosage: 4.68 MILLIGRAM, QD
     Route: 058
     Dates: start: 20200316
  10. TEDUGLUTIDE [Suspect]
     Active Substance: TEDUGLUTIDE
     Dosage: 0.2280 (UNIT UNKNOWN) 1X/DAY:QD
     Route: 058
     Dates: start: 20200320
  11. TEDUGLUTIDE [Suspect]
     Active Substance: TEDUGLUTIDE
     Dosage: 0.2280 (UNIT UNKOWN), 1X/DAY:QD
     Route: 058
  12. TEDUGLUTIDE [Suspect]
     Active Substance: TEDUGLUTIDE
     Indication: SHORT-BOWEL SYNDROME
     Dosage: 4.68 MILLIGRAM, 1X/DAY:QD
     Route: 058
     Dates: start: 202003
  13. TEDUGLUTIDE [Suspect]
     Active Substance: TEDUGLUTIDE
     Dosage: 0.2280 (UNIT UNKNOWN) 1X/DAY:QD
     Route: 058
     Dates: start: 20200320
  14. TEDUGLUTIDE [Suspect]
     Active Substance: TEDUGLUTIDE
     Dosage: 4.68 MILLIGRAM, 1X/DAY:QD
     Route: 058
     Dates: start: 20200320
  15. TEDUGLUTIDE [Suspect]
     Active Substance: TEDUGLUTIDE
     Dosage: 4.68 MILLIGRAM, QD
     Route: 058
     Dates: start: 20200317
  16. TEDUGLUTIDE [Suspect]
     Active Substance: TEDUGLUTIDE
     Dosage: 4.68 MILLIGRAM, QD
     Route: 058
     Dates: start: 20200317
  17. TEDUGLUTIDE [Suspect]
     Active Substance: TEDUGLUTIDE
     Dosage: 4.68 MILLIGRAM, QD
     Route: 058
     Dates: start: 20200316
  18. TEDUGLUTIDE [Suspect]
     Active Substance: TEDUGLUTIDE
     Dosage: 0.2280 (UNIT UNKNOWN) 1X/DAY:QD
     Route: 058
     Dates: start: 20200320
  19. TEDUGLUTIDE [Suspect]
     Active Substance: TEDUGLUTIDE
     Dosage: 0.2280 (UNIT UNKOWN), 1X/DAY:QD
     Route: 058
  20. TEDUGLUTIDE [Suspect]
     Active Substance: TEDUGLUTIDE
     Indication: SHORT-BOWEL SYNDROME
     Dosage: 4.68 MILLIGRAM, 1X/DAY:QD
     Route: 058
     Dates: start: 202003
  21. TEDUGLUTIDE [Suspect]
     Active Substance: TEDUGLUTIDE
     Dosage: 4.68 MILLIGRAM, 1X/DAY:QD
     Route: 058
     Dates: start: 20200320
  22. TEDUGLUTIDE [Suspect]
     Active Substance: TEDUGLUTIDE
     Dosage: 0.2280 (UNIT UNKOWN), 1X/DAY:QD
     Route: 058
  23. TEDUGLUTIDE [Suspect]
     Active Substance: TEDUGLUTIDE
     Dosage: 0.2280 (UNIT UNKOWN), 1X/DAY:QD
     Route: 058
  24. TEDUGLUTIDE [Suspect]
     Active Substance: TEDUGLUTIDE
     Dosage: 4.68 MILLIGRAM, QD
     Route: 058
     Dates: start: 20200317

REACTIONS (5)
  - Lung disorder [Unknown]
  - Pulmonary mass [Not Recovered/Not Resolved]
  - Vomiting [Recovering/Resolving]
  - Inappropriate schedule of product administration [Not Recovered/Not Resolved]
  - Nausea [Recovering/Resolving]

NARRATIVE: CASE EVENT DATE: 202006
